FAERS Safety Report 16140022 (Version 1)
Quarter: 2019Q1

REPORT INFORMATION
  Report Type: Spontaneous
  Country: US (occurrence: US)
  Receive Date: 20190331
  Receipt Date: 20190331
  Transmission Date: 20190418
  Serious: Yes (Hospitalization, Other)
  Sender: FDA-Public Use
  Company Number: US-AMGEN-USASP2019048069

PATIENT

DRUGS (1)
  1. PROLIA [Suspect]
     Active Substance: DENOSUMAB
     Indication: PROPHYLAXIS
     Dosage: UNK
     Route: 065

REACTIONS (7)
  - Lung infection [Unknown]
  - Malaise [Unknown]
  - Decreased immune responsiveness [Not Recovered/Not Resolved]
  - Osteomyelitis [Unknown]
  - Pain in extremity [Unknown]
  - Herpes zoster [Unknown]
  - Anaemia [Unknown]
